FAERS Safety Report 8270806-X (Version None)
Quarter: 2012Q2

REPORT INFORMATION
  Report Type: 
  Country: None (occurrence: None)
  Receive Date: 20120410
  Receipt Date: 20120402
  Transmission Date: 20120825
  Serious: Yes (Hospitalization)
  Sender: FDA-Public Use
  Company Number: JP-SANOFI-AVENTIS-2012SA021877

PATIENT
  Age: 67 Year
  Sex: Male

DRUGS (2)
  1. PLAVIX [Suspect]
     Indication: ANGINA PECTORIS
     Route: 048
     Dates: start: 20120204, end: 20120224
  2. ASPIRIN [Concomitant]
     Dosage: BEFORE FEB-2012
     Route: 048

REACTIONS (1)
  - LIVER DISORDER [None]
